FAERS Safety Report 16300091 (Version 1)
Quarter: 2019Q2

REPORT INFORMATION
  Report Type: Spontaneous
  Country: TR (occurrence: TR)
  Receive Date: 20190510
  Receipt Date: 20190510
  Transmission Date: 20190711
  Serious: Yes (Life-Threatening, Other)
  Sender: FDA-Public Use
  Company Number: TR-PFIZER INC-2019194981

PATIENT
  Age: 16 Year
  Sex: Female

DRUGS (7)
  1. DIAZEPAM. [Suspect]
     Active Substance: DIAZEPAM
     Indication: GENERALISED TONIC-CLONIC SEIZURE
     Dosage: 30 MG, DAILY
     Route: 042
  2. THIOPENTAL [Suspect]
     Active Substance: THIOPENTAL
     Indication: GENERALISED TONIC-CLONIC SEIZURE
     Dosage: 5 MG/KG, UNK, INFUSION (5 MG/KG/H)
  3. PHENYTOIN SODIUM. [Suspect]
     Active Substance: PHENYTOIN SODIUM
     Dosage: 30 MG/KG, UNK, (INFUSION)
  4. PHENYTOIN SODIUM. [Suspect]
     Active Substance: PHENYTOIN SODIUM
     Indication: GENERALISED TONIC-CLONIC SEIZURE
     Dosage: 125 MG, 3X/DAY, (3?125 MG)
  5. MIDAZOLAM [Suspect]
     Active Substance: MIDAZOLAM HYDROCHLORIDE
     Dosage: UNK, (TAPERING)
  6. THIOPENTAL [Suspect]
     Active Substance: THIOPENTAL
     Dosage: UNK, (TAPERED)
  7. MIDAZOLAM [Suspect]
     Active Substance: MIDAZOLAM HYDROCHLORIDE
     Indication: GENERALISED TONIC-CLONIC SEIZURE
     Dosage: 0.4 MG/KG, UNK, (0.4 MG/KG/H, INFUSION)

REACTIONS (5)
  - Drug ineffective [Recovered/Resolved]
  - Liver function test increased [Unknown]
  - Thrombocytopenia [Unknown]
  - Pneumonia [Unknown]
  - Gastrointestinal haemorrhage [Unknown]
